FAERS Safety Report 5309418-6 (Version None)
Quarter: 2007Q2

REPORT INFORMATION
  Report Type: 
  Country: None (occurrence: None)
  Receive Date: 20070425
  Receipt Date: 20070425
  Transmission Date: 20071010
  Serious: Yes (Life-Threatening, Hospitalization)
  Sender: FDA-Public Use
  Company Number: None

PATIENT
  Sex: Male
  Weight: 76.2 kg

DRUGS (9)
  1. LYRICA [Suspect]
     Indication: NEURALGIA
     Dosage: DAILY PO
     Route: 048
  2. VALIUM [Concomitant]
  3. BACLOFEN [Concomitant]
  4. PERCOCET [Concomitant]
  5. NEURONTIN [Concomitant]
  6. ALBUTEROL [Concomitant]
  7. RITALIN [Concomitant]
  8. MUCOMYST [Concomitant]
  9. IPRATROPIU [Concomitant]

REACTIONS (3)
  - ANGIOEDEMA [None]
  - SWELLING [None]
  - URTICARIA [None]
